FAERS Safety Report 5251103-3 (Version None)
Quarter: 2007Q1

REPORT INFORMATION
  Report Type: 
  Country: None (occurrence: None)
  Receive Date: 20070228
  Receipt Date: 20060929
  Transmission Date: 20070707
  Serious: No
  Sender: FDA-Public Use
  Company Number: US-GLAXOSMITHKLINE-A0618075A

PATIENT
  Age: 42 Year
  Sex: Male
  Weight: 90.9 kg

DRUGS (4)
  1. LAMICTAL [Suspect]
     Indication: BIPOLAR DISORDER
     Dosage: 200MG PER DAY
     Route: 048
  2. SEROQUEL [Concomitant]
     Dosage: 100MG AT NIGHT
  3. ANTABUSE [Concomitant]
     Dosage: 250MG PER DAY
     Dates: start: 20060401
  4. ZYPREXA [Concomitant]
     Dosage: 7.5MG PER DAY

REACTIONS (4)
  - DERMATITIS CONTACT [None]
  - INSOMNIA [None]
  - PRURITUS [None]
  - WEIGHT DECREASED [None]
